FAERS Safety Report 9137155 (Version 1)
Quarter: 2013Q1

REPORT INFORMATION
  Report Type: Spontaneous
  Country: US (occurrence: US)
  Receive Date: 20130304
  Receipt Date: 20130304
  Transmission Date: 20140127
  Serious: No
  Sender: FDA-Public Use
  Company Number: US-ABBOTT-12P-163-0925023-00

PATIENT
  Age: 84 Year
  Sex: Male
  Weight: 70.37 kg

DRUGS (3)
  1. ANDROGEL 1% [Suspect]
     Indication: BLOOD TESTOSTERONE DECREASED
     Dates: start: 2010
  2. UNKNOWN EYE DROPS [Concomitant]
     Indication: GLAUCOMA
  3. ASPIRIN [Concomitant]
     Indication: PROPHYLAXIS

REACTIONS (1)
  - Blood pressure increased [Not Recovered/Not Resolved]
